FAERS Safety Report 9697507 (Version 4)
Quarter: 2014Q1

REPORT INFORMATION
  Report Type: Report from Study
  Country: FR (occurrence: FR)
  Receive Date: 20131120
  Receipt Date: 20140124
  Transmission Date: 20141002
  Serious: Yes (Hospitalization, Other)
  Sender: FDA-Public Use
  Company Number: FR-MILLENNIUM PHARMACEUTICALS, INC.-2013JNJ001058

PATIENT
  Sex: 0

DRUGS (8)
  1. VFEND [Concomitant]
     Dosage: 200 MG, UNK
  2. INSULIN [Concomitant]
     Indication: DIABETES MELLITUS
  3. NEORECORMON [Concomitant]
     Dosage: UNK
     Dates: start: 201301
  4. KARDEGIC [Concomitant]
     Dosage: UNK
     Dates: start: 201301, end: 201305
  5. VELCADE [Suspect]
     Indication: PLASMA CELL MYELOMA
     Dosage: UNK
     Route: 065
     Dates: start: 20110520, end: 20130117
  6. POMALIDOMIDE [Concomitant]
     Indication: PLASMA CELL MYELOMA
     Dosage: UNK
     Dates: start: 20130125, end: 20130528
  7. DEXAMETHASONE [Concomitant]
     Indication: PLASMA CELL MYELOMA
     Dosage: UNK
     Dates: start: 20130125, end: 20130528
  8. VFEND [Concomitant]
     Indication: BRONCHOPULMONARY ASPERGILLOSIS
     Dosage: 300 MG, UNK
     Dates: end: 20130515

REACTIONS (2)
  - Febrile bone marrow aplasia [Recovered/Resolved]
  - Pyrexia [Recovered/Resolved]
